FAERS Safety Report 5134780-7 (Version None)
Quarter: 2006Q4

REPORT INFORMATION
  Report Type: 
  Country: None (occurrence: None)
  Receive Date: 20061025
  Receipt Date: 20061004
  Transmission Date: 20070319
  Serious: Yes (Hospitalization)
  Sender: FDA-Public Use
  Company Number: IT-ROCHE-465879

PATIENT
  Age: 61 Year
  Sex: Male
  Weight: 87 kg

DRUGS (7)
  1. CAPECITABINE [Suspect]
     Dosage: DAY 2 - 15 OF A 21 DAY CYCLE.
     Route: 048
     Dates: start: 20060803, end: 20061003
  2. CAPECITABINE [Suspect]
     Route: 048
     Dates: start: 20061017
  3. BEVACIZUMAB [Suspect]
     Dosage: DAY 1 OF A 21 DAY CYCLE.
     Route: 042
     Dates: start: 20060802, end: 20061003
  4. BEVACIZUMAB [Suspect]
     Route: 042
     Dates: start: 20061017
  5. IRINOTECAN HCL [Suspect]
     Dosage: DAY 1 OF A 21 DAY CYCLE.
     Route: 042
     Dates: start: 20060802, end: 20061003
  6. IRINOTECAN HCL [Suspect]
     Route: 042
     Dates: start: 20061017
  7. MEPRAL [Concomitant]
     Dates: start: 20060802

REACTIONS (1)
  - INTESTINAL OBSTRUCTION [None]
